FAERS Safety Report 13791576 (Version 1)
Quarter: 2017Q3

REPORT INFORMATION
  Report Type: Spontaneous
  Country: US (occurrence: US)
  Receive Date: 20170725
  Receipt Date: 20170725
  Transmission Date: 20171127
  Serious: No
  Sender: FDA-Public Use
  Company Number: US-SHIRE-US201713915

PATIENT

DRUGS (2)
  1. GAMMAGARD LIQUID [Suspect]
     Active Substance: HUMAN IMMUNOGLOBULIN G
     Indication: HODGKIN^S DISEASE
     Dosage: 3 GRAMS; 0.1 GM/ML IV DAILY WITH ^OTHER MEDICATIONS^ OVER A 4 HOUR PERIOD EVERY 6 WEEKS
     Route: 042
  2. GAMMAGARD LIQUID [Suspect]
     Active Substance: HUMAN IMMUNOGLOBULIN G
     Indication: PLASMA CELL MYELOMA

REACTIONS (2)
  - Off label use [Unknown]
  - Nonspecific reaction [Unknown]
